FAERS Safety Report 10243792 (Version 1)
Quarter: 2014Q2

REPORT INFORMATION
  Report Type: Spontaneous
  Country: AU (occurrence: AU)
  Receive Date: 20140618
  Receipt Date: 20140618
  Transmission Date: 20141212
  Serious: Yes (Other)
  Sender: FDA-Public Use
  Company Number: AU-PFIZER INC-2014161059

PATIENT
  Age: 27 Year
  Sex: Male

DRUGS (2)
  1. LYRICA [Suspect]
     Indication: ARTHRITIS
     Dosage: 1000 MG, DAILY
  2. MS CONTIN [Suspect]

REACTIONS (7)
  - Intentional product misuse [Unknown]
  - Drug withdrawal syndrome [Unknown]
  - Aggression [Unknown]
  - Panic attack [Unknown]
  - Anxiety [Unknown]
  - Crying [Unknown]
  - Drug tolerance [Unknown]
